FAERS Safety Report 26215933 (Version 1)
Quarter: 2025Q4

REPORT INFORMATION
  Report Type: Report from Study
  Country: CA (occurrence: CA)
  Receive Date: 20251231
  Receipt Date: 20251231
  Transmission Date: 20260118
  Serious: Yes (Other)
  Sender: Alvotech
  Company Number: CA-JAMP PHARMA CORPORATION-2024-JAM-CA-00359

PATIENT
  Age: 48 Year
  Sex: Female

DRUGS (1)
  1. SIMLANDI [Suspect]
     Active Substance: ADALIMUMAB-RYVK
     Indication: Rheumatoid arthritis
     Dosage: 40 MILLIGRAM, EVERY OTHER WEEK
     Route: 058

REACTIONS (6)
  - Rheumatoid arthritis [Unknown]
  - Adverse event [Unknown]
  - Diarrhoea [Unknown]
  - Abdominal pain [Unknown]
  - Pain [Not Recovered/Not Resolved]
  - Peripheral swelling [Not Recovered/Not Resolved]

NARRATIVE: CASE EVENT DATE: 20250701
